FAERS Safety Report 21351715 (Version 1)
Quarter: 2022Q3

REPORT INFORMATION
  Report Type: Other
  Country: PT (occurrence: None)
  Receive Date: 20220919
  Receipt Date: 20220919
  Transmission Date: 20221027
  Serious: Yes (Hospitalization, Other)
  Sender: FDA-Public Use
  Company Number: PT-Square-000097

PATIENT
  Age: 43 Year
  Sex: Female

DRUGS (19)
  1. ACYCLOVIR [Suspect]
     Active Substance: ACYCLOVIR
     Indication: Meningitis
     Dosage: 10 MG/KG Q8H (700MG Q8H)
     Route: 042
  2. DEXAMETHASONE [Concomitant]
     Active Substance: DEXAMETHASONE
     Indication: Meningitis
     Dosage: 4 MG Q6H
     Route: 048
  3. TENOFOVIR [Concomitant]
     Active Substance: TENOFOVIR
     Indication: Product used for unknown indication
  4. EMTRICITABINE [Concomitant]
     Active Substance: EMTRICITABINE
     Indication: Product used for unknown indication
  5. DOLUTEGRAVIR [Concomitant]
     Active Substance: DOLUTEGRAVIR
     Indication: Product used for unknown indication
  6. PYRIMETHAMINE [Concomitant]
     Active Substance: PYRIMETHAMINE
     Indication: Product used for unknown indication
  7. CLINDAMYCIN [Concomitant]
     Active Substance: CLINDAMYCIN
     Indication: Product used for unknown indication
  8. LEUCOVORIN CALCIUM [Concomitant]
     Active Substance: LEUCOVORIN CALCIUM
     Indication: Product used for unknown indication
  9. LEVETIRACETAM [Concomitant]
     Active Substance: LEVETIRACETAM
     Indication: Product used for unknown indication
  10. CEFTRIAXONE [Concomitant]
     Active Substance: CEFTRIAXONE
     Indication: Meningitis
     Dosage: 2G Q12H
  11. AMPICILLIN [Concomitant]
     Active Substance: AMPICILLIN
     Indication: Meningitis
     Dosage: 2G Q4H
  12. GADOLINIUM [Concomitant]
     Active Substance: GADOLINIUM
     Indication: Product used for unknown indication
  13. PREDNISOLONE [Concomitant]
     Active Substance: PREDNISOLONE
     Indication: Product used for unknown indication
     Dosage: TAPERING OFF 20 MG EVERY SEVEN DAYS
     Route: 048
  14. DEXAMETHASONE [Concomitant]
     Active Substance: DEXAMETHASONE
     Indication: Meningitis
     Dosage: 5 MG Q8H
     Route: 048
  15. ACYCLOVIR [Suspect]
     Active Substance: ACYCLOVIR
     Indication: Myelopathy
     Dosage: 10 MG/KG Q8H (700MG Q8H)
     Route: 042
  16. CEFTRIAXONE [Concomitant]
     Active Substance: CEFTRIAXONE
     Indication: Myelopathy
     Dosage: 2G Q12H
  17. AMPICILLIN [Concomitant]
     Active Substance: AMPICILLIN
     Indication: Myelopathy
     Dosage: 2G Q4H
  18. DEXAMETHASONE [Concomitant]
     Active Substance: DEXAMETHASONE
     Indication: Myelopathy
     Dosage: 4 MG Q6H
     Route: 048
  19. DEXAMETHASONE [Concomitant]
     Active Substance: DEXAMETHASONE
     Indication: Myelopathy
     Dosage: 5 MG Q8H
     Route: 048

REACTIONS (5)
  - Therapy partial responder [Unknown]
  - Peripheral sensorimotor neuropathy [Unknown]
  - Paraplegia [Unknown]
  - Sphincter of Oddi dysfunction [Unknown]
  - Disease progression [Unknown]
